FAERS Safety Report 4765524-6 (Version None)
Quarter: 2005Q3

REPORT INFORMATION
  Report Type: 
  Country: None (occurrence: None)
  Receive Date: 20050906
  Receipt Date: 20050824
  Transmission Date: 20060218
  Serious: Yes (Life-Threatening)
  Sender: FDA-Public Use
  Company Number: 2005109549

PATIENT
  Age: 11 Year
  Sex: Male
  Weight: 38.5 kg

DRUGS (5)
  1. ZITHROMAX [Suspect]
     Indication: PYREXIA
     Dosage: ORAL
     Route: 048
     Dates: start: 20050407
  2. ZADITEN [Concomitant]
  3. TRANSAMIN (TRANNEXAMIC ACID) [Concomitant]
  4. MUCODYNE (CARBOCISTEINE0 [Concomitant]
  5. ACETAMINOPHEN [Concomitant]

REACTIONS (3)
  - CHILLS [None]
  - HENOCH-SCHONLEIN PURPURA [None]
  - PYREXIA [None]
